FAERS Safety Report 6412204-7 (Version None)
Quarter: 2009Q4

REPORT INFORMATION
  Report Type: 
  Country: None (occurrence: None)
  Receive Date: 20091023
  Receipt Date: 20091020
  Transmission Date: 20100525
  Serious: Yes (Life-Threatening, Other)
  Sender: FDA-Public Use
  Company Number: B0586083A

PATIENT
  Sex: Female
  Weight: 52 kg

DRUGS (3)
  1. AVAMYS [Suspect]
     Indication: DRUG USE FOR UNKNOWN INDICATION
     Route: 045
     Dates: start: 20090505, end: 20090519
  2. XYZAL [Concomitant]
     Route: 048
  3. UNKNOWN DRUG [Concomitant]

REACTIONS (5)
  - CUSHING'S SYNDROME [None]
  - CUSHINGOID [None]
  - HAIR GROWTH ABNORMAL [None]
  - HYPOTHALAMO-PITUITARY DISORDER [None]
  - SKIN STRIAE [None]
